FAERS Safety Report 4344737-1 (Version None)
Quarter: 2004Q2

REPORT INFORMATION
  Report Type: 
  Country: None (occurrence: None)
  Receive Date: 20040420
  Receipt Date: 20040407
  Transmission Date: 20050107
  Serious: Yes (Hospitalization)
  Sender: FDA-Public Use
  Company Number: 2004208653JP

PATIENT
  Age: 54 Year
  Sex: Female
  Weight: 61.1 kg

DRUGS (6)
  1. SOLU-CORTEF [Suspect]
     Indication: SUDDEN HEARING LOSS
     Dosage: SEE IMAGE
     Route: 042
     Dates: start: 20010709, end: 20010722
  2. SOLU-CORTEF [Suspect]
     Indication: SUDDEN HEARING LOSS
     Dosage: SEE IMAGE
     Route: 042
     Dates: start: 20010723, end: 20010723
  3. SOLU-CORTEF [Suspect]
     Indication: SUDDEN HEARING LOSS
     Dosage: SEE IMAGE
     Route: 042
     Dates: start: 20010724, end: 20010724
  4. METHYCOBAL (MECOBALAMIN) [Concomitant]
  5. KALLIDINOGENASE (KALLIDINOGENASE) [Concomitant]
  6. ADETPHOS (ADENOSINE TRIPHOSPHATE, DISODIUM SALT) [Concomitant]

REACTIONS (7)
  - ACINETOBACTER INFECTION [None]
  - CATHETER SEPSIS [None]
  - CHILLS [None]
  - DRUG HYPERSENSITIVITY [None]
  - IMMUNOSUPPRESSION [None]
  - INFUSION RELATED REACTION [None]
  - LIVER DISORDER [None]
